FAERS Safety Report 10312601 (Version 1)
Quarter: 2014Q3

REPORT INFORMATION
  Report Type: Spontaneous
  Country: IT (occurrence: None)
  Receive Date: 20140716
  Receipt Date: 20140716
  Transmission Date: 20150326
  Serious: Yes (Death, Hospitalization)
  Sender: FDA-Public Use
  Company Number: DEP_02189_2014

PATIENT
  Age: 20 Year
  Sex: Male

DRUGS (11)
  1. GABAPENTIN. [Concomitant]
     Active Substance: GABAPENTIN
  2. PECFENT [Suspect]
     Active Substance: FENTANYL CITRATE
     Indication: BREAKTHROUGH PAIN
     Dosage: 100 UG/1 BOTTLE, 100 UG AS REQUIRED NASAL)
     Route: 045
  3. TRAMADOL [Concomitant]
     Active Substance: TRAMADOL
  4. IMATINIB [Concomitant]
     Active Substance: IMATINIB
  5. SUNITINIB [Concomitant]
     Active Substance: SUNITINIB
  6. VINCRISTINE [Concomitant]
     Active Substance: VINCRISTINE
  7. OXYCODONE (OXYCODONE) [Suspect]
     Active Substance: OXYCODONE
     Indication: BREAKTHROUGH PAIN
     Dosage: 10 MG TID LONG ACTING
  8. KETOPROFENE [Concomitant]
     Active Substance: KETOPROFEN
  9. ADRIAMYCIN [Concomitant]
     Active Substance: DOXORUBICIN HYDROCHLORIDE
  10. CYCLOPHOSPHAMIDE. [Concomitant]
     Active Substance: CYCLOPHOSPHAMIDE
  11. IFOSFAMIDE. [Concomitant]
     Active Substance: IFOSFAMIDE

REACTIONS (7)
  - Ewing^s sarcoma [None]
  - Abdominal pain [None]
  - Drug abuse [None]
  - Metastases to peritoneum [None]
  - Metastases to liver [None]
  - Malignant neoplasm progression [None]
  - Drug dependence [None]
